FAERS Safety Report 16861332 (Version 2)
Quarter: 2019Q3

REPORT INFORMATION
  Report Type: Spontaneous
  Country: KR (occurrence: KR)
  Receive Date: 20190927
  Receipt Date: 20190930
  Transmission Date: 20191005
  Serious: Yes (Life-Threatening, Hospitalization, Other)
  Sender: FDA-Public Use
  Company Number: KR-SA-2019SA264358

PATIENT
  Age: 67 Year
  Sex: Female

DRUGS (2)
  1. FLUNITRAZEPAM [Interacting]
     Active Substance: FLUNITRAZEPAM
     Dosage: UNK UNK, TOTAL
     Route: 048
  2. STILNOX [Suspect]
     Active Substance: ZOLPIDEM TARTRATE
     Dosage: 100 DF, TOTAL
     Route: 048

REACTIONS (14)
  - Intentional overdose [Unknown]
  - Bundle branch block right [Recovered/Resolved]
  - Torsade de pointes [Recovered/Resolved]
  - Potentiating drug interaction [Unknown]
  - Toxicity to various agents [Recovered/Resolved]
  - Electrocardiogram QT prolonged [Recovered/Resolved]
  - Respiratory acidosis [Recovered/Resolved]
  - Bradycardia [Recovered/Resolved]
  - Coma [Recovered/Resolved]
  - Ventricular fibrillation [Recovered/Resolved]
  - Mental status changes [Recovered/Resolved]
  - Loss of consciousness [Recovered/Resolved]
  - Hypoxia [Recovered/Resolved]
  - Cardiac failure [Recovered/Resolved]
